FAERS Safety Report 24766330 (Version 2)
Quarter: 2025Q1

REPORT INFORMATION
  Report Type: Spontaneous
  Country: JP (occurrence: JP)
  Receive Date: 20241223
  Receipt Date: 20250128
  Transmission Date: 20250408
  Serious: Yes (Life-Threatening, Hospitalization, Disabling, Other)
  Sender: PFIZER
  Company Number: JP-PFIZER INC-PV202400166492

PATIENT
  Age: 8 Decade
  Sex: Female
  Weight: 43.7 kg

DRUGS (13)
  1. XELJANZ [Suspect]
     Active Substance: TOFACITINIB CITRATE
     Indication: Colitis ulcerative
     Route: 048
     Dates: end: 20190829
  2. XELJANZ [Suspect]
     Active Substance: TOFACITINIB CITRATE
     Route: 048
     Dates: start: 20190907
  3. XELJANZ [Suspect]
     Active Substance: TOFACITINIB CITRATE
     Dosage: 10 MG, 2X/DAY (AFTER BREAKFAST AND DINNER)
     Route: 048
     Dates: start: 20210325
  4. ISOBIDE [ISOSORBIDE] [Concomitant]
     Indication: Meniere^s disease
     Dosage: 30 ML, 2X/DAY (AFTER BREAKFAST AND DINNER)
     Route: 048
  5. METHYLCOBALAMIN [Concomitant]
     Active Substance: METHYLCOBALAMIN
     Indication: Meniere^s disease
     Dosage: 500 UG, 3X/DAY (AFTER BREAKFAST, LUNCH, AND DINNER)
     Route: 048
  6. NIACINAMIDE\PAPAVERINE HYDROCHLORIDE [Concomitant]
     Active Substance: NIACINAMIDE\PAPAVERINE HYDROCHLORIDE
     Indication: Meniere^s disease
     Dosage: 2 TABLETS, 3X/DAY (AFTER BREAKFAST, LUNCH, AND DINNER)
     Route: 048
  7. GASLON [Concomitant]
     Active Substance: IRSOGLADINE MALEATE
     Indication: Colitis ulcerative
     Dosage: 2 MG, 2X/DAY (AFTER BREAKFAST AND DINNER)
     Route: 048
  8. ZOLPIDEM TARTRATE [Concomitant]
     Active Substance: ZOLPIDEM TARTRATE
     Indication: Colitis ulcerative
     Dosage: 5 MG, 1X/DAY (BEFORE BEDTIME)
     Route: 048
  9. NEXIUM [Concomitant]
     Active Substance: ESOMEPRAZOLE MAGNESIUM
     Indication: Colitis ulcerative
     Dosage: 20 MG, 1X/DAY(AFTER DINNER)
     Route: 048
  10. ASACOL [Concomitant]
     Active Substance: MESALAMINE
     Indication: Colitis ulcerative
     Dosage: 1200 MG, 3X/DAY (AFTER BREAKFAST, LUNCH, AND DINNER)
     Route: 048
  11. METFORMIN HYDROCHLORIDE\VILDAGLIPTIN [Concomitant]
     Active Substance: METFORMIN HYDROCHLORIDE\VILDAGLIPTIN
     Indication: Type 2 diabetes mellitus
     Dosage: 1 TABLET, 2X/DAY (AFTER BREAKFAST AND DINNER)
     Route: 048
  12. PITAVASTATIN CALCIUM [Concomitant]
     Active Substance: PITAVASTATIN CALCIUM
     Indication: Dyslipidaemia
     Dosage: 2 MG, 1X/DAY (AFTER DINNER)
     Route: 048
  13. GLIMICRON HA [Concomitant]
     Indication: Type 2 diabetes mellitus
     Dosage: 20 MG, 1X/DAY (AFTER BREAKFAST)
     Route: 048

REACTIONS (3)
  - Cerebral haemorrhage [Recovered/Resolved]
  - Abdominal discomfort [Unknown]
  - Decreased appetite [Unknown]

NARRATIVE: CASE EVENT DATE: 20190801
